FAERS Safety Report 24684182 (Version 1)
Quarter: 2024Q4

REPORT INFORMATION
  Report Type: Report from Study
  Country: US (occurrence: US)
  Receive Date: 20241202
  Receipt Date: 20241202
  Transmission Date: 20250115
  Serious: Yes (Hospitalization, Other)
  Sender: EMD SERONO INC
  Company Number: US-Merck Healthcare KGaA-2024062563

PATIENT
  Sex: Female

DRUGS (2)
  1. MAVENCLAD [Suspect]
     Active Substance: CLADRIBINE
     Indication: Multiple sclerosis
     Dosage: YEAR ONE MONTH ONE THERAPY
     Dates: start: 20241104, end: 20241108
  2. OXYGEN [Concomitant]
     Active Substance: OXYGEN
     Indication: Dyspnoea

REACTIONS (11)
  - Dyspnoea [Unknown]
  - White blood cell count decreased [Unknown]
  - Red blood cell count decreased [Unknown]
  - Oxygen saturation decreased [Unknown]
  - Gait inability [Unknown]
  - Alopecia [Unknown]
  - Peripheral coldness [Unknown]
  - Migraine [Unknown]
  - Visual impairment [Unknown]
  - Insomnia [Unknown]
  - Feeling cold [Unknown]
